FAERS Safety Report 9596838 (Version 1)
Quarter: 2013Q4

REPORT INFORMATION
  Report Type: Report from Study
  Country: US (occurrence: US)
  Receive Date: 20131004
  Receipt Date: 20131004
  Transmission Date: 20140711
  Serious: Yes (Other)
  Sender: FDA-Public Use
  Company Number: US-ABBVIE-13P-163-1151792-00

PATIENT
  Age: 57 Year
  Sex: Male

DRUGS (3)
  1. HUMIRA [Suspect]
     Indication: PSORIASIS
     Route: 058
     Dates: start: 2012, end: 201304
  2. HUMIRA [Suspect]
     Dates: start: 2013, end: 20130918
  3. METHOTREXATE [Concomitant]
     Indication: PRODUCT USED FOR UNKNOWN INDICATION

REACTIONS (4)
  - Spinal column stenosis [Unknown]
  - Intervertebral disc annular tear [Unknown]
  - Intervertebral disc protrusion [Unknown]
  - Arthropod bite [Not Recovered/Not Resolved]
